FAERS Safety Report 5676224-2 (Version None)
Quarter: 2008Q1

REPORT INFORMATION
  Report Type: 
  Country: None (occurrence: None)
  Receive Date: 20080321
  Receipt Date: 20080313
  Transmission Date: 20080703
  Serious: Yes (Other)
  Sender: FDA-Public Use
  Company Number: US-PFIZER INC-2007102352

PATIENT
  Sex: Female
  Weight: 59.09 kg

DRUGS (4)
  1. DETROL LA [Suspect]
     Indication: HYPERTONIC BLADDER
     Route: 048
     Dates: start: 20071118, end: 20071203
  2. DETROL LA [Suspect]
  3. LAMICTAL [Concomitant]
     Indication: CONVULSION
     Route: 048
  4. TEGRETOL [Concomitant]
     Route: 048

REACTIONS (3)
  - ABDOMINAL PAIN UPPER [None]
  - CONSTIPATION [None]
  - MUSCLE SPASMS [None]
